FAERS Safety Report 7922078 (Version 6)
Quarter: 2013Q1

REPORT INFORMATION
  Report Type: Spontaneous
  Country: US (occurrence: US)
  Receive Date: 20110429
  Receipt Date: 20130320
  Transmission Date: 20140127
  Serious: No
  Sender: FDA-Public Use
  Company Number: US-ASTRAZENECA-2010SE61453

PATIENT
  Age: 66 Year
  Sex: Female

DRUGS (1)
  1. NEXIUM [Suspect]
     Route: 048

REACTIONS (9)
  - Abdominal distension [Unknown]
  - Cardiac disorder [Unknown]
  - Chest discomfort [Unknown]
  - Chest pain [Unknown]
  - Hyperchlorhydria [Unknown]
  - Diabetes mellitus [Unknown]
  - Abdominal discomfort [Unknown]
  - Nausea [Unknown]
  - Drug dose omission [Unknown]
